FAERS Safety Report 10837922 (Version 1)
Quarter: 2015Q1

REPORT INFORMATION
  Report Type: Report from Study
  Country: US (occurrence: US)
  Receive Date: 20150219
  Receipt Date: 20150219
  Transmission Date: 20150721
  Serious: No
  Sender: FDA-Public Use
  Company Number: US-ABBVIE-14P-163-1220445-00

PATIENT

DRUGS (2)
  1. HUMIRA [Suspect]
     Active Substance: ADALIMUMAB
     Indication: RHEUMATOID ARTHRITIS
     Dates: start: 20140114
  2. HUMIRA [Suspect]
     Active Substance: ADALIMUMAB

REACTIONS (1)
  - Cough [Unknown]

NARRATIVE: CASE EVENT DATE: 20140218
